FAERS Safety Report 6371887-0 (Version None)
Quarter: 2009Q3

REPORT INFORMATION
  Report Type: 
  Country: None (occurrence: None)
  Receive Date: 20090923
  Receipt Date: 20090916
  Transmission Date: 20100115
  Serious: Yes (Hospitalization)
  Sender: FDA-Public Use
  Company Number: DE-SANOFI-SYNTHELABO-A04200901347

PATIENT
  Age: 58 Year
  Sex: Male
  Weight: 88 kg

DRUGS (3)
  1. FOLINIC ACID [Concomitant]
     Indication: RECTAL CANCER
     Route: 041
     Dates: start: 20090720, end: 20090721
  2. FLUOROURACIL [Concomitant]
     Indication: RECTAL CANCER
     Route: 041
     Dates: start: 20090720, end: 20090722
  3. OXALIPLATIN [Suspect]
     Indication: RECTAL CANCER
     Route: 041
     Dates: start: 20090720, end: 20090720

REACTIONS (2)
  - DIABETIC KETOACIDOTIC HYPERGLYCAEMIC COMA [None]
  - TYPE 1 DIABETES MELLITUS [None]
